FAERS Safety Report 9969662 (Version 1)
Quarter: 2014Q1

REPORT INFORMATION
  Report Type: Spontaneous
  Country: US (occurrence: None)
  Receive Date: 20140304
  Receipt Date: 20140304
  Transmission Date: 20141002
  Serious: Yes (Life-Threatening, Other)
  Sender: FDA-Public Use
  Company Number: None

PATIENT
  Age: 57 Year
  Sex: Male
  Weight: 76.2 kg

DRUGS (1)
  1. AXIRON, 30 MG, LILLY [Suspect]
     Dosage: 1 PUMP UNDER EA ARMPIT; APPLIED TO A SURFACE, USUALLY THE SKIN
     Dates: start: 20130101, end: 20130616

REACTIONS (8)
  - Malaise [None]
  - Dehydration [None]
  - Tooth disorder [None]
  - Pain [None]
  - Back pain [None]
  - Dyspnoea [None]
  - Constipation [None]
  - Vomiting [None]
